FAERS Safety Report 5035525-1 (Version None)
Quarter: 2006Q2

REPORT INFORMATION
  Report Type: 
  Country: None (occurrence: None)
  Receive Date: 20060525
  Receipt Date: 20060303
  Transmission Date: 20061013
  Serious: Yes (Other)
  Sender: FDA-Public Use
  Company Number: S06-USA-00724-01

PATIENT
  Age: 38 Year
  Sex: Female
  Weight: 54.4316 kg

DRUGS (7)
  1. CAMPRAL [Suspect]
     Indication: ALCOHOLISM
     Dosage: 666 MG TID PO
     Route: 048
     Dates: start: 20060224, end: 20060227
  2. ATIVAN [Concomitant]
  3. ATARAX [Concomitant]
  4. MULTI-VITAMIN [Concomitant]
  5. THIAMIN [Concomitant]
  6. PROTONIX [Concomitant]
  7. UNISOM [Concomitant]

REACTIONS (1)
  - PANCREATITIS [None]
